FAERS Safety Report 11667923 (Version 16)
Quarter: 2021Q2

REPORT INFORMATION
  Report Type: Report from Study
  Country: CO (occurrence: CO)
  Receive Date: 20151027
  Receipt Date: 20210524
  Transmission Date: 20210716
  Serious: Yes (Hospitalization, Other)
  Sender: FDA-Public Use
  Company Number: PHHY2015CO138744

PATIENT
  Age: 8 Year
  Sex: Female
  Weight: 37 kg

DRUGS (10)
  1. JADENU [Suspect]
     Active Substance: DEFERASIROX
     Indication: SICKLE CELL DISEASE
     Dosage: 360 MG, QD
     Route: 048
  2. JADENU [Suspect]
     Active Substance: DEFERASIROX
     Dosage: 180 MG, QD
     Route: 048
  3. EXJADE [Suspect]
     Active Substance: DEFERASIROX
     Dosage: UNK
     Route: 048
     Dates: start: 20161106
  4. FOLIC ACID. [Concomitant]
     Active Substance: FOLIC ACID
     Indication: SICKLE CELL ANAEMIA
     Dosage: 1 MG, QD
     Route: 048
  5. EXJADE [Suspect]
     Active Substance: DEFERASIROX
     Indication: SICKLE CELL ANAEMIA
     Dosage: 250 MG, UNK
     Route: 048
     Dates: start: 20130209
  6. EXJADE [Suspect]
     Active Substance: DEFERASIROX
     Dosage: 20 MG/KG, QD (500 MG ONCE DAILY)
     Route: 048
     Dates: start: 2015, end: 201509
  7. EXJADE [Suspect]
     Active Substance: DEFERASIROX
     Dosage: 500 MG, BID
     Route: 048
     Dates: start: 20170309
  8. AOV VITAMIN D3 [Concomitant]
     Indication: NUTRITIONAL SUPPLEMENTATION
     Dosage: 5000 UNK, QD
     Route: 048
  9. HIDROXIUREA [Concomitant]
     Active Substance: HYDROXYUREA
     Indication: SICKLE CELL ANAEMIA
     Dosage: 500 MG, QD (EVERY 24 HOURS)
     Route: 048
  10. FOLIC ACID. [Concomitant]
     Active Substance: FOLIC ACID
     Dosage: 2 MG, QD
     Route: 048

REACTIONS (21)
  - Pleural effusion [Recovered/Resolved]
  - Ultrasound Doppler abnormal [Unknown]
  - Renal disorder [Unknown]
  - Product use issue [Unknown]
  - Pallor [Unknown]
  - Condition aggravated [Unknown]
  - Aplastic anaemia [Unknown]
  - Abdominal pain [Unknown]
  - Proteinuria [Unknown]
  - Yellow skin [Unknown]
  - Serum ferritin increased [Unknown]
  - Back pain [Unknown]
  - Cholelithiasis [Unknown]
  - Haemoglobin decreased [Unknown]
  - Pain [Recovered/Resolved]
  - Anaemia [Recovered/Resolved]
  - Umbilical hernia [Unknown]
  - Anxiety [Unknown]
  - Chest pain [Unknown]
  - Pneumonia [Unknown]
  - Pneumonia [Recovered/Resolved]

NARRATIVE: CASE EVENT DATE: 201603
